FAERS Safety Report 21488235 (Version 2)
Quarter: 2022Q4

REPORT INFORMATION
  Report Type: Report from Study
  Country: CZ (occurrence: CZ)
  Receive Date: 20221020
  Receipt Date: 20221023
  Transmission Date: 20230113
  Serious: Yes (Hospitalization)
  Sender: FDA-Public Use
  Company Number: CZ-BIOGEN-2022BI01163317

PATIENT
  Age: 44 Year
  Sex: Female

DRUGS (10)
  1. TYSABRI [Suspect]
     Active Substance: NATALIZUMAB
     Indication: Relapsing-remitting multiple sclerosis
     Route: 050
     Dates: start: 20150626
  2. VIGANTOL [Concomitant]
     Indication: Prophylaxis
     Route: 050
     Dates: start: 201001
  3. PREGABALIN [Concomitant]
     Active Substance: PREGABALIN
     Indication: Multiple sclerosis
     Route: 050
     Dates: start: 201501
  4. PREGABALIN [Concomitant]
     Active Substance: PREGABALIN
     Route: 050
     Dates: start: 201001
  5. MAGNESIUM CARBONATE\MAGNESIUM OXIDE [Concomitant]
     Active Substance: MAGNESIUM CARBONATE\MAGNESIUM OXIDE
     Indication: Multiple sclerosis
     Route: 050
     Dates: start: 201001
  6. MAGNESIUM CARBONATE\MAGNESIUM OXIDE [Concomitant]
     Active Substance: MAGNESIUM CARBONATE\MAGNESIUM OXIDE
     Route: 050
     Dates: start: 201001
  7. NEUROL [Concomitant]
     Indication: Multiple sclerosis
     Route: 050
     Dates: start: 201501
  8. NEUROL [Concomitant]
     Route: 050
     Dates: start: 201001
  9. RIVOTRIL [Concomitant]
     Active Substance: CLONAZEPAM
     Indication: Multiple sclerosis
     Route: 050
     Dates: start: 201501
  10. RIVOTRIL [Concomitant]
     Active Substance: CLONAZEPAM
     Route: 050
     Dates: start: 201001

REACTIONS (1)
  - Pancreatitis acute [Recovered/Resolved]

NARRATIVE: CASE EVENT DATE: 20220605
